FAERS Safety Report 7401879-1 (Version None)
Quarter: 2011Q2

REPORT INFORMATION
  Report Type: 
  Country: None (occurrence: None)
  Receive Date: 20110408
  Receipt Date: 20110324
  Transmission Date: 20111010
  Serious: No
  Sender: FDA-Public Use
  Company Number: US-JNJFOC-20110311862

PATIENT
  Sex: Male
  Weight: 81.65 kg

DRUGS (4)
  1. FENTANYL [Suspect]
     Dosage: ONE 100 UG/HR PATCH AND ONE 50 UG/HR PATCH
     Route: 062
  2. FENTANYL [Suspect]
     Indication: NECK PAIN
     Dosage: ONE 100 UG/HR AND ONE 50 UG/HR PATCH
     Route: 062
  3. FENTANYL [Suspect]
     Indication: BACK PAIN
     Dosage: ONE 100 UG/HR AND ONE 50 UG/HR PATCH
     Route: 062
  4. FENTANYL [Suspect]
     Dosage: ONE 100 UG/HR PATCH AND ONE 50 UG/HR PATCH
     Route: 062

REACTIONS (2)
  - DRUG EFFECT DECREASED [None]
  - WRONG TECHNIQUE IN DRUG USAGE PROCESS [None]
